FAERS Safety Report 5825624-6 (Version None)
Quarter: 2008Q3

REPORT INFORMATION
  Report Type: 
  Country: None (occurrence: None)
  Receive Date: 20080729
  Receipt Date: 20080723
  Transmission Date: 20090109
  Serious: Yes (Life-Threatening, Hospitalization, Disabling)
  Sender: FDA-Public Use
  Company Number: B0529519A

PATIENT
  Sex: Female
  Weight: 64 kg

DRUGS (2)
  1. LAPATINIB [Suspect]
     Indication: BREAST CANCER
     Dosage: 1000MG PER DAY
     Route: 048
     Dates: start: 20080523
  2. TRASTUZUMAB [Suspect]
     Indication: BREAST CANCER
     Dosage: 6MGK PER DAY
     Route: 042
     Dates: start: 20080523

REACTIONS (7)
  - CARDIAC FAILURE CONGESTIVE [None]
  - CARDIOMEGALY [None]
  - DYSPNOEA [None]
  - PLEURAL EFFUSION [None]
  - PNEUMONIA [None]
  - PULMONARY CONGESTION [None]
  - PULMONARY HYPERTENSION [None]
